FAERS Safety Report 21021623 (Version 1)
Quarter: 2022Q2

REPORT INFORMATION
  Report Type: Spontaneous
  Country: AU (occurrence: AU)
  Receive Date: 20220629
  Receipt Date: 20220629
  Transmission Date: 20220720
  Serious: Yes (Other)
  Sender: FDA-Public Use
  Company Number: AU-CYCLE PHARMACEUTICALS LTD-2022-CYC-000019

PATIENT

DRUGS (1)
  1. NITISINONE [Suspect]
     Active Substance: NITISINONE
     Indication: Tyrosinaemia
     Dosage: 1-2 MG/KG
     Route: 065

REACTIONS (1)
  - Hepatocellular carcinoma [Recovered/Resolved]
